FAERS Safety Report 9544223 (Version 1)
Quarter: 2013Q3

REPORT INFORMATION
  Report Type: Spontaneous
  Country: US (occurrence: US)
  Receive Date: 20130923
  Receipt Date: 20130923
  Transmission Date: 20140515
  Serious: No
  Sender: FDA-Public Use
  Company Number: US-ASTRAZENECA-2013SE52878

PATIENT
  Age: 54 Year
  Sex: Male

DRUGS (2)
  1. LISINOPRIL [Suspect]
  2. UNSPECIFIED - CARDIOVASCULAR [Suspect]

REACTIONS (2)
  - Dyspnoea exertional [Unknown]
  - Musculoskeletal pain [Unknown]
